FAERS Safety Report 7197845-4 (Version None)
Quarter: 2010Q4

REPORT INFORMATION
  Report Type: 
  Country: None (occurrence: None)
  Receive Date: 20101227
  Receipt Date: 20101221
  Transmission Date: 20110411
  Serious: Yes (Life-Threatening, Hospitalization)
  Sender: FDA-Public Use
  Company Number: ES-ROCHE-673903

PATIENT
  Age: 66 Year
  Sex: Male

DRUGS (3)
  1. TAMIFLU [Suspect]
     Indication: H1N1 INFLUENZA
     Dosage: STARTED 5 DAYS AFTER ONSET OF SYMPTOMS, DOSE INCREASED AFTER 8 HOURS.
     Route: 065
  2. TAMIFLU [Suspect]
     Dosage: 8 HRS AFTER ADMISSION. CONTINUED TILL DAY 9 AFTER ONSET OF SYMPTOMS.
     Route: 065
  3. TAMIFLU [Suspect]
     Dosage: SECOND COURSE. CONTINUED TILL DAY 32 AFTER ONSET OF SYMPTOMS.
     Route: 065

REACTIONS (2)
  - DRUG INEFFECTIVE [None]
  - PATHOGEN RESISTANCE [None]
